FAERS Safety Report 11393926 (Version 1)
Quarter: 2015Q3

REPORT INFORMATION
  Report Type: Spontaneous
  Country: US (occurrence: None)
  Receive Date: 20150817
  Receipt Date: 20150817
  Transmission Date: 20151125
  Serious: Yes (Other)
  Sender: FDA-Public Use
  Company Number: None

PATIENT
  Age: 72 Year
  Sex: Male
  Weight: 80.74 kg

DRUGS (5)
  1. ATORVASTATIN CALCIUM. [Concomitant]
     Active Substance: ATORVASTATIN CALCIUM
  2. LOW DOSE ASPIRIN [Concomitant]
     Active Substance: ASPIRIN
  3. PREVALITE POWDER (CHOLESTYRAMINE FOR ORAL GUAFENESIN) [Concomitant]
  4. MULTIPLE VITAMIN [Concomitant]
     Active Substance: VITAMINS
  5. SELEGILINE HYDROCHLORIDE CAPSULES [Suspect]
     Active Substance: SELEGILINE HYDROCHLORIDE
     Indication: PARKINSON^S DISEASE
     Dosage: 2 CAPSULES (2) + (2)
     Route: 048
     Dates: start: 20141030, end: 20150415

REACTIONS (2)
  - Hypoaesthesia oral [None]
  - Glossodynia [None]
